FAERS Safety Report 6766867-7 (Version None)
Quarter: 2010Q2

REPORT INFORMATION
  Report Type: 
  Country: None (occurrence: None)
  Receive Date: 20100611
  Receipt Date: 20100527
  Transmission Date: 20101027
  Serious: Yes (Hospitalization, Other)
  Sender: FDA-Public Use
  Company Number: PHEH2008US09014

PATIENT
  Sex: Female
  Weight: 60.771 kg

DRUGS (58)
  1. AREDIA [Suspect]
     Dosage: 30 MG, QMO
     Dates: start: 20000701, end: 20070601
  2. AREDIA [Suspect]
     Dosage: 90 MG, QMO
  3. PROMETHAZINE [Concomitant]
     Dosage: 25MG PO Q4HRS PRN
     Route: 048
  4. VALTREX [Concomitant]
     Dosage: 1000MG PO TID
     Route: 048
  5. QUININE SULFATE [Concomitant]
     Dosage: 260MG PO QHS
     Route: 048
  6. LORTAB [Concomitant]
     Dosage: 5-500MG Q4HR PRN
     Route: 048
  7. FEMARA [Concomitant]
     Dosage: 2.5MG PO QD
     Route: 048
  8. TRAZODONE HYDROCHLORIDE [Concomitant]
     Dosage: PO
     Route: 048
  9. NEURONTIN [Concomitant]
     Dosage: 300MG PO TID
     Route: 048
  10. EFFEXOR [Concomitant]
     Dosage: 37.5MG PO BID
     Route: 048
  11. AMBIEN [Concomitant]
     Dosage: 5MG PO HS PRN
     Route: 048
  12. IMITREX ^CERENEX^ [Concomitant]
     Dosage: 100MG TABS
     Route: 048
  13. CARAFATE [Concomitant]
     Dosage: UNK
     Route: 048
  14. VITAMIN B6 [Concomitant]
     Dosage: UNK
     Route: 048
  15. AROMASIN [Concomitant]
     Dosage: 25MG PO QD
     Route: 048
     Dates: start: 20061101
  16. OMEPRAZOLE [Concomitant]
     Dosage: 20MG PO QD
     Route: 048
  17. ARIMIDEX [Concomitant]
     Dosage: 1MG PO QD
     Route: 048
  18. VICODIN [Concomitant]
     Dosage: UNK
     Route: 048
  19. LOVENOX [Concomitant]
     Dosage: 50MG SQ
     Route: 058
  20. CLINDAMYCIN [Concomitant]
     Dosage: 600MG
     Dates: start: 20060503, end: 20060504
  21. MORPHINE [Concomitant]
     Dosage: UNK
  22. FENTANYL [Concomitant]
     Dosage: 100MCG
  23. DILAUDID [Concomitant]
     Dosage: 2MG
  24. HYDROCODONE [Concomitant]
  25. IBUPROFEN [Concomitant]
  26. MIRALAX [Concomitant]
  27. DOXORUBICIN HCL [Concomitant]
  28. TAXOTERE [Concomitant]
  29. CISPLATIN [Concomitant]
  30. TAMOXIFEN [Concomitant]
     Dosage: 20 MG, UNK
     Route: 048
  31. MEGACE [Concomitant]
  32. LETROZOLE [Concomitant]
     Dosage: 2.5 MG, UNK
  33. ACYCLOVIR [Concomitant]
     Dosage: 400 MG, UNK
  34. PERIOGARD [Concomitant]
  35. NOLVADEX [Concomitant]
  36. KEFLEX [Concomitant]
     Dosage: 500 MG, UNK
  37. AVELOX [Concomitant]
  38. CEFTIN [Concomitant]
  39. FLAGYL [Concomitant]
  40. FLEXERIL [Concomitant]
  41. ZITHROMAX [Concomitant]
  42. DIFLUCAN [Concomitant]
  43. PERIDEX [Concomitant]
  44. BLOOD AND RELATED PRODUCTS [Concomitant]
     Dosage: UNK
  45. ZYLET [Concomitant]
  46. CELEBREX [Concomitant]
     Dosage: 100 MG, BID
     Route: 048
  47. TRAZODONE [Concomitant]
     Dosage: 600 MG, UNK
  48. RADIATION [Concomitant]
  49. PROTONIX [Concomitant]
  50. NAVELBINE [Concomitant]
  51. TOBRAMYCIN [Concomitant]
  52. UNISOM [Concomitant]
     Dosage: UNK MG, QHS
     Route: 048
  53. LUVOX [Concomitant]
     Dosage: 50 MG, 2 QHS
     Route: 048
  54. ZOSTRIX [Concomitant]
     Dosage: 0.075 %, QID
     Route: 061
  55. ZOLOFT [Concomitant]
     Dosage: 50 MG, QD
     Route: 048
  56. MOTRIN [Concomitant]
  57. ANTIBIOTICS [Concomitant]
     Dosage: UNK
  58. CYCLOPHOSPHAMIDE [Concomitant]

REACTIONS (74)
  - ANAEMIA [None]
  - ANXIETY [None]
  - ARTHRALGIA [None]
  - ATROPHIC VULVOVAGINITIS [None]
  - BACK PAIN [None]
  - BONE DISORDER [None]
  - BONE LESION [None]
  - BONE OPERATION [None]
  - BONE PAIN [None]
  - BRONCHIECTASIS [None]
  - BRONCHITIS [None]
  - BURSITIS [None]
  - CATHETER REMOVAL [None]
  - CENTRAL VENOUS CATHETERISATION [None]
  - CHEST PAIN [None]
  - CONJUNCTIVITIS [None]
  - DECREASED INTEREST [None]
  - DEPRESSION [None]
  - DERMATITIS CONTACT [None]
  - DEVICE RELATED INFECTION [None]
  - DYSPEPSIA [None]
  - DYSPNOEA [None]
  - ENTHESOPATHY [None]
  - FATIGUE [None]
  - FEMUR FRACTURE [None]
  - FIBROCYSTIC BREAST DISEASE [None]
  - GAIT DISTURBANCE [None]
  - GENERAL PHYSICAL HEALTH DETERIORATION [None]
  - GENITAL HERPES [None]
  - GINGIVAL BLEEDING [None]
  - HEADACHE [None]
  - HERPES ZOSTER [None]
  - HIP SURGERY [None]
  - HOT FLUSH [None]
  - IMPAIRED HEALING [None]
  - INFUSION SITE SWELLING [None]
  - INSOMNIA [None]
  - JOINT SWELLING [None]
  - LUNG NEOPLASM [None]
  - MALAISE [None]
  - MENOPAUSE [None]
  - METASTASES TO BONE [None]
  - METASTATIC PAIN [None]
  - MIGRAINE [None]
  - MOUTH ULCERATION [None]
  - MUSCLE SPASMS [None]
  - NAUSEA [None]
  - NECROSIS [None]
  - NEUROPATHY PERIPHERAL [None]
  - NIGHT SWEATS [None]
  - OEDEMA PERIPHERAL [None]
  - OROPHARYNGEAL PAIN [None]
  - OSTEOARTHRITIS [None]
  - OSTEONECROSIS OF JAW [None]
  - OSTEOPENIA [None]
  - PAIN [None]
  - PAIN IN EXTREMITY [None]
  - PAIN IN JAW [None]
  - PARAESTHESIA [None]
  - PRODUCTIVE COUGH [None]
  - PRURITUS [None]
  - PYREXIA [None]
  - RASH [None]
  - RHINORRHOEA [None]
  - SERUM FERRITIN INCREASED [None]
  - SINUSITIS [None]
  - SURGERY [None]
  - TRANSPLANT [None]
  - UPPER RESPIRATORY TRACT INFECTION [None]
  - VAGINAL INFECTION [None]
  - VAGINITIS BACTERIAL [None]
  - VOMITING [None]
  - VULVOVAGINAL CANDIDIASIS [None]
  - WEIGHT DECREASED [None]
